FAERS Safety Report 16561545 (Version 3)
Quarter: 2019Q4

REPORT INFORMATION
  Report Type: Spontaneous
  Country: SE (occurrence: SE)
  Receive Date: 20190711
  Receipt Date: 20191022
  Transmission Date: 20200122
  Serious: Yes (Hospitalization)
  Sender: FDA-Public Use
  Company Number: SE-SA-2019SA186485

PATIENT
  Age: 55 Year
  Sex: Male

DRUGS (3)
  1. ARAVA [Suspect]
     Active Substance: LEFLUNOMIDE
     Indication: RHEUMATOID ARTHRITIS
     Dosage: 20 MG, QD
     Route: 065
     Dates: start: 20150129
  2. DERMOVAT [CLOBETASOL PROPIONATE] [Concomitant]
     Dosage: UNK
     Dates: start: 20171013
  3. ORUDIS [Concomitant]
     Active Substance: KETOPROFEN
     Dosage: UNK
     Dates: start: 20140623

REACTIONS (9)
  - Episcleritis [Not Recovered/Not Resolved]
  - Cutaneous vasculitis [Recovered/Resolved]
  - Nodule [Not Recovered/Not Resolved]
  - Eosinophilia [Recovered/Resolved]
  - Red blood cell sedimentation rate [Recovered/Resolved]
  - Pulmonary embolism [Recovered/Resolved]
  - C-reactive protein [Recovered/Resolved]
  - Rheumatoid arthritis [Recovering/Resolving]
  - Synovitis [Recovering/Resolving]

NARRATIVE: CASE EVENT DATE: 2018
